FAERS Safety Report 8072950-9 (Version None)
Quarter: 2011Q4

REPORT INFORMATION
  Report Type: 
  Country: None (occurrence: None)
  Receive Date: 20111221
  Receipt Date: 20110726
  Transmission Date: 20120403
  Serious: Yes (Hospitalization)
  Sender: FDA-Public Use
  Company Number: PHHY2011US68932

PATIENT
  Age: 28 Year
  Sex: Male

DRUGS (1)
  1. EXJADE [Suspect]
     Dosage: UNK UKN, UNK

REACTIONS (1)
  - SICKLE CELL ANAEMIA WITH CRISIS [None]
